FAERS Safety Report 6192275-6 (Version None)
Quarter: 2009Q2

REPORT INFORMATION
  Report Type: 
  Country: None (occurrence: None)
  Receive Date: 20090515
  Receipt Date: 20090508
  Transmission Date: 20091009
  Serious: Yes (Other)
  Sender: FDA-Public Use
  Company Number: PHHY2009BR17769

PATIENT
  Age: 60 Year
  Sex: Female
  Weight: 68 kg

DRUGS (3)
  1. DIOVAN HCT [Suspect]
     Indication: HYPERTENSION
     Dosage: 1 DF DAILY
     Route: 048
     Dates: start: 20080501
  2. LEVOTHYROXINE SODIUM [Concomitant]
     Dosage: 1 DF, QD (IN FASTING)
     Route: 048
     Dates: start: 20090101
  3. METFORMIN HCL [Concomitant]
     Dosage: 1 DF, BID (COFFEE AND DINNER)
     Route: 048
     Dates: start: 20090201

REACTIONS (8)
  - DIABETES MELLITUS [None]
  - DYSPHONIA [None]
  - HYPERTHYROIDISM [None]
  - INFLUENZA [None]
  - PAIN [None]
  - PYREXIA [None]
  - RHINITIS [None]
  - THROAT IRRITATION [None]
